FAERS Safety Report 19429943 (Version 1)
Quarter: 2021Q2

REPORT INFORMATION
  Report Type: Report from Study
  Country: US (occurrence: US)
  Receive Date: 20210617
  Receipt Date: 20210617
  Transmission Date: 20210717
  Serious: Yes (Death, Other)
  Sender: FDA-Public Use
  Company Number: US-PFIZER INC-2021583649

PATIENT
  Age: 76 Year
  Sex: Female

DRUGS (2)
  1. IBRANCE [Suspect]
     Active Substance: PALBOCICLIB
     Indication: BREAST CANCER FEMALE
     Dosage: 100 MG, CYCLIC (100 MG DAILY TIMES 21 DAYS OFF 7)
     Route: 048
     Dates: start: 20210511
  2. FASLODEX [Concomitant]
     Active Substance: FULVESTRANT
     Dosage: UNK

REACTIONS (5)
  - Asthenia [Unknown]
  - Haemoglobin decreased [Unknown]
  - Fatigue [Unknown]
  - Blood count abnormal [Unknown]
  - Death [Fatal]

NARRATIVE: CASE EVENT DATE: 20210606
